FAERS Safety Report 12839574 (Version 1)
Quarter: 2016Q4

REPORT INFORMATION
  Report Type: Spontaneous
  Country: US (occurrence: US)
  Receive Date: 20161012
  Receipt Date: 20161012
  Transmission Date: 20170207
  Serious: Yes (Hospitalization)
  Sender: FDA-Public Use
  Company Number: None

PATIENT
  Age: 41 Year
  Sex: Female
  Weight: 80.5 kg

DRUGS (3)
  1. TAXOL [Suspect]
     Active Substance: PACLITAXEL
     Dates: end: 20160922
  2. CARBOPLATIN. [Suspect]
     Active Substance: CARBOPLATIN
     Dates: end: 20160922
  3. CISPLATIN. [Suspect]
     Active Substance: CISPLATIN
     Dates: end: 20160822

REACTIONS (9)
  - Skin disorder [None]
  - Folliculitis [None]
  - Erythema [None]
  - Induration [None]
  - Haemoglobin decreased [None]
  - Febrile neutropenia [None]
  - Rash macular [None]
  - Tenderness [None]
  - Streptococcus test positive [None]

NARRATIVE: CASE EVENT DATE: 20161003
